FAERS Safety Report 15999727 (Version 3)
Quarter: 2019Q4

REPORT INFORMATION
  Report Type: Spontaneous
  Country: US (occurrence: US)
  Receive Date: 20190225
  Receipt Date: 20191030
  Transmission Date: 20200122
  Serious: Yes (Hospitalization)
  Sender: FDA-Public Use
  Company Number: US-PFIZER INC-2019078738

PATIENT
  Age: 69 Year
  Sex: Female

DRUGS (1)
  1. IBRANCE [Suspect]
     Active Substance: PALBOCICLIB
     Dosage: 125 MG, CYCLIC (EVERY DAY X 21, 7 OFF/IBRANCE 125MG CAP 1 CAP PO (PER ORAL) DAILY X21DAYS,7 DAYSOFF)
     Route: 048

REACTIONS (2)
  - Dizziness [Unknown]
  - Pneumonia [Unknown]
